FAERS Safety Report 24075099 (Version 2)
Quarter: 2024Q4

REPORT INFORMATION
  Report Type: Spontaneous
  Country: US (occurrence: US)
  Receive Date: 20240710
  Receipt Date: 20241008
  Transmission Date: 20250114
  Serious: Yes (Death, Other)
  Sender: BRISTOL MYERS SQUIBB
  Company Number: US-BRISTOL-MYERS SQUIBB COMPANY-2024-108647

PATIENT
  Age: 49 Year
  Sex: Male

DRUGS (2)
  1. OPDIVO [Suspect]
     Active Substance: NIVOLUMAB
     Indication: Endometrial cancer
     Dosage: DOSE : 480 MG | 77 MG;(OPDIVO) EVERY 28 DAYS
     Route: 041
     Dates: start: 20240319
  2. YERVOY [Suspect]
     Active Substance: IPILIMUMAB
     Indication: Endometrial cancer
     Dosage: DOSE: 77 MG; FREQ : (YERVOY) EVERY 21 DAYS
     Route: 041
     Dates: start: 20240319

REACTIONS (2)
  - Death [Fatal]
  - Off label use [Unknown]

NARRATIVE: CASE EVENT DATE: 20240707
